FAERS Safety Report 15657670 (Version 1)
Quarter: 2018Q4

REPORT INFORMATION
  Report Type: Spontaneous
  Country: US (occurrence: US)
  Receive Date: 20181126
  Receipt Date: 20181126
  Transmission Date: 20190205
  Serious: No
  Sender: FDA-Public Use
  Company Number: US-BAYER-2018-216896

PATIENT
  Age: 79 Year
  Sex: Female
  Weight: 64 kg

DRUGS (3)
  1. CLARITIN [Suspect]
     Active Substance: LORATADINE
     Indication: HYPERSENSITIVITY
  2. CLARITIN [Suspect]
     Active Substance: LORATADINE
     Indication: PRURITUS GENERALISED
     Dosage: 2 DF, QD
     Route: 048
     Dates: start: 201805
  3. CLARITIN [Suspect]
     Active Substance: LORATADINE
     Indication: NASOPHARYNGITIS

REACTIONS (1)
  - Incorrect dose administered [Unknown]

NARRATIVE: CASE EVENT DATE: 201805
